FAERS Safety Report 14268455 (Version 1)
Quarter: 2017Q4

REPORT INFORMATION
  Report Type: Spontaneous
  Country: US (occurrence: US)
  Receive Date: 20171211
  Receipt Date: 20171211
  Transmission Date: 20180321
  Serious: No
  Sender: FDA-Public Use
  Company Number: US-GLAXOSMITHKLINE-US2017189213

PATIENT
  Sex: Male

DRUGS (1)
  1. SEREVENT DISKUS [Suspect]
     Active Substance: SALMETEROL XINAFOATE
     Indication: LOWER RESPIRATORY TRACT INFECTION
     Dosage: 1 PUFF(S), BID
     Route: 055

REACTIONS (6)
  - Dry throat [Unknown]
  - Off label use [Unknown]
  - Cough [Unknown]
  - Dysgeusia [Unknown]
  - Dry mouth [Unknown]
  - Product use in unapproved indication [Unknown]
